FAERS Safety Report 4629035-0 (Version None)
Quarter: 2005Q2

REPORT INFORMATION
  Report Type: 
  Country: None (occurrence: None)
  Receive Date: 20050405
  Receipt Date: 20050405
  Transmission Date: 20051028
  Serious: Yes (Hospitalization)
  Sender: FDA-Public Use
  Company Number: None

PATIENT
  Age: 37 Year
  Sex: Male
  Weight: 73.4827 kg

DRUGS (2)
  1. GEMCITABINE [Suspect]
     Indication: GALLBLADDER CANCER
     Dosage: 500 MG/M2
     Dates: start: 20040430, end: 20040820
  2. XELODA [Suspect]
     Indication: GALLBLADDER CANCER
     Dosage: 325 MG/M2
     Dates: start: 20040430, end: 20040820

REACTIONS (8)
  - ASTHENIA [None]
  - FATIGUE [None]
  - HYDRONEPHROSIS [None]
  - JAUNDICE [None]
  - NAUSEA [None]
  - PYREXIA [None]
  - URETERIC OBSTRUCTION [None]
  - VOMITING [None]
